FAERS Safety Report 5428133-1 (Version None)
Quarter: 2007Q3

REPORT INFORMATION
  Report Type: 
  Country: None (occurrence: None)
  Receive Date: 20070828
  Receipt Date: 20070802
  Transmission Date: 20080115
  Serious: No
  Sender: FDA-Public Use
  Company Number: US-BOEHRINGER INGELHEIM PHARMACEUTICALS, INC.-2006-BP-12824BP

PATIENT
  Age: 57 Year
  Sex: Male

DRUGS (4)
  1. SPIRIVA [Suspect]
     Indication: CHRONIC OBSTRUCTIVE PULMONARY DISEASE
     Route: 055
     Dates: start: 20060801
  2. SPIRIVA [Suspect]
     Indication: EXPOSURE TO TOXIC AGENT
  3. XOPENEX [Concomitant]
     Indication: DYSPNOEA
  4. BENADRYL [Concomitant]
     Indication: MYOCARDIAL INFARCTION

REACTIONS (1)
  - DYSPNOEA [None]
